FAERS Safety Report 24763859 (Version 1)
Quarter: 2024Q4

REPORT INFORMATION
  Report Type: Spontaneous
  Country: US (occurrence: US)
  Receive Date: 20241223
  Receipt Date: 20241223
  Transmission Date: 20250114
  Serious: No
  Sender: SANOFI AVENTIS
  Company Number: US-SANOFI-02340060

PATIENT
  Age: 46 Year
  Sex: Female

DRUGS (1)
  1. LANTUS SOLOSTAR [Suspect]
     Active Substance: INSULIN GLARGINE
     Dosage: 35 UNITS IN THE AM, AND 35 UNITS IN THE PM.
     Route: 065

REACTIONS (1)
  - Inappropriate schedule of product administration [Unknown]
